FAERS Safety Report 23060597 (Version 3)
Quarter: 2023Q4

REPORT INFORMATION
  Report Type: Report from Study
  Country: ES (occurrence: ES)
  Receive Date: 20231012
  Receipt Date: 20231115
  Transmission Date: 20240109
  Serious: Yes (Hospitalization, Disabling, Other)
  Sender: FDA-Public Use
  Company Number: ES-BEIGENE-BGN-2023-005256

PATIENT
  Age: 72 Year
  Sex: Male
  Weight: 85 kg

DRUGS (17)
  1. CARBOPLATIN [Suspect]
     Active Substance: CARBOPLATIN
     Indication: Non-small cell lung cancer metastatic
     Dosage: 609 MG
     Route: 042
     Dates: start: 20230321
  2. CARBOPLATIN [Suspect]
     Active Substance: CARBOPLATIN
     Dosage: 624 MG
     Route: 042
     Dates: start: 20230517
  3. PEMETREXED [Suspect]
     Active Substance: PEMETREXED
     Dosage: 915 MG
     Route: 042
     Dates: start: 20230517
  4. PEMETREXED [Suspect]
     Active Substance: PEMETREXED
     Indication: Non-small cell lung cancer metastatic
     Dosage: 940 MG
     Route: 042
     Dates: start: 20230321
  5. TISLELIZUMAB [Suspect]
     Active Substance: TISLELIZUMAB
     Indication: Non-small cell lung cancer metastatic
     Dosage: 200 MG
     Route: 042
     Dates: start: 20230321
  6. ACETYLCYSTEINE [Concomitant]
     Active Substance: ACETYLCYSTEINE
     Indication: Empyema
     Dosage: UNK
     Route: 065
     Dates: start: 20230419
  7. FOLIC ACID [Concomitant]
     Active Substance: FOLIC ACID
     Indication: Premedication
     Dosage: UNK
     Route: 065
     Dates: start: 20230316
  8. CYANOCOBALAMIN [Concomitant]
     Active Substance: CYANOCOBALAMIN
     Indication: Premedication
     Dosage: UNK
     Route: 065
     Dates: start: 20230316
  9. DURFENTA [Concomitant]
     Indication: Lung neoplasm malignant
     Dosage: UNK
     Route: 065
     Dates: start: 20230225
  10. FERROUS SULFATE [Concomitant]
     Active Substance: FERROUS SULFATE
     Indication: Prophylaxis
     Dosage: UNK
     Route: 065
     Dates: start: 20230419
  11. FUROSEMIDE [Concomitant]
     Active Substance: FUROSEMIDE
     Indication: Empyema
     Dosage: UNK
     Route: 065
     Dates: start: 20230203
  12. CALCIFEDIOL [Concomitant]
     Active Substance: CALCIFEDIOL
     Indication: Prophylaxis
     Dosage: UNK
     Route: 065
     Dates: start: 20230419
  13. INDOMETHACIN [Concomitant]
     Active Substance: INDOMETHACIN
     Indication: Empyema
     Dosage: UNK
     Route: 065
     Dates: start: 20230419
  14. LACTULOSE [Concomitant]
     Active Substance: LACTULOSE
     Indication: Constipation
     Route: 065
  15. PANTOPRAZOLE SODIUM [Concomitant]
     Active Substance: PANTOPRAZOLE SODIUM
     Indication: Prophylaxis
     Dosage: UNK
     Route: 065
     Dates: start: 20230203, end: 20230824
  16. ACETAMINOPHEN [Concomitant]
     Active Substance: ACETAMINOPHEN
     Indication: Pain
     Dosage: UNK
     Route: 065
     Dates: start: 20230203
  17. SIMVASTATIN [Concomitant]
     Active Substance: SIMVASTATIN
     Indication: Dyslipidaemia
     Dosage: UNK
     Route: 065
     Dates: start: 202204

REACTIONS (2)
  - Respiratory tract infection [Recovered/Resolved]
  - Anaemia [Recovered/Resolved]

NARRATIVE: CASE EVENT DATE: 20230604
